FAERS Safety Report 5167488-2 (Version None)
Quarter: 2006Q4

REPORT INFORMATION
  Report Type: 
  Country: None (occurrence: None)
  Receive Date: 20061130
  Receipt Date: 20061121
  Transmission Date: 20070319
  Serious: Yes (Death, Other)
  Sender: FDA-Public Use
  Company Number: 225181

PATIENT
  Age: 45 Year
  Sex: Female

DRUGS (9)
  1. MABTHERA(RITUXIMAB) CONC FOR SOLUTION FOR INFUSION [Suspect]
     Indication: SYSTEMIC LUPUS ERYTHEMATOSUS
     Dosage: 375 MG/M2, 1/WEEK, INTRAVENOUS
     Route: 042
     Dates: start: 20020818, end: 20020918
  2. MABTHERA(RITUXIMAB) CONC FOR SOLUTION FOR INFUSION [Suspect]
     Indication: SYSTEMIC LUPUS ERYTHEMATOSUS
     Dosage: 375 MG/M2, 1/WEEK, INTRAVENOUS
     Route: 042
     Dates: start: 20050401, end: 20050501
  3. MABTHERA(RITUXIMAB) CONC FOR SOLUTION FOR INFUSION [Suspect]
     Indication: SYSTEMIC LUPUS ERYTHEMATOSUS
     Dosage: 375 MG/M2, 1/WEEK, INTRAVENOUS
     Route: 042
     Dates: start: 20051101
  4. AMLODIPINE BESYLATE [Concomitant]
  5. CALCICHEW D3 (CALCIUM CARBONATE, CHOLECALCIFEROL) [Concomitant]
  6. HYDROXYCHLLOROQUINE (HYDROXYCHLOROQUINE SULFATE) [Concomitant]
  7. LEVOTHYROXINE SODIUM [Concomitant]
  8. CLARITIN [Concomitant]
  9. NUVELLE (ESTRADIOL VALERATE, LEVONORGESTREL) [Concomitant]

REACTIONS (22)
  - ACUTE RESPIRATORY DISTRESS SYNDROME [None]
  - BRAIN STEM SYNDROME [None]
  - CEREBELLAR SYNDROME [None]
  - COORDINATION ABNORMAL [None]
  - CYANOSIS [None]
  - DISEASE RECURRENCE [None]
  - DYSARTHRIA [None]
  - HERPES ZOSTER [None]
  - INTESTINAL OBSTRUCTION [None]
  - JC VIRUS INFECTION [None]
  - LOBAR PNEUMONIA [None]
  - MOUTH ULCERATION [None]
  - NERVOUS SYSTEM DISORDER [None]
  - NEUTROPENIA [None]
  - NYSTAGMUS [None]
  - PAIN IN EXTREMITY [None]
  - PROGRESSIVE MULTIFOCAL LEUKOENCEPHALOPATHY [None]
  - RESPIRATORY DISTRESS [None]
  - RESPIRATORY FAILURE [None]
  - RESPIRATORY TRACT INFECTION [None]
  - URETERIC OBSTRUCTION [None]
  - WHITE BLOOD CELL COUNT DECREASED [None]
